FAERS Safety Report 4408855-1 (Version None)
Quarter: 2004Q3

REPORT INFORMATION
  Report Type: 
  Country: None (occurrence: None)
  Receive Date: 20040727
  Receipt Date: 20040722
  Transmission Date: 20050211
  Serious: Yes (Other)
  Sender: FDA-Public Use
  Company Number: DEPFP-S-20040028

PATIENT
  Age: 80 Year
  Sex: Male

DRUGS (6)
  1. NAVELBINE [Suspect]
     Indication: NON-SMALL CELL LUNG CANCER
     Dosage: 20MG CYCLIC
     Route: 042
     Dates: start: 20030416, end: 20040421
  2. GEMZAR [Concomitant]
     Dates: start: 20030416, end: 20030709
  3. UNAT [Concomitant]
     Indication: ILL-DEFINED DISORDER
  4. SPIRONOLACTONE [Concomitant]
     Indication: ILL-DEFINED DISORDER
  5. METOPROLOL [Concomitant]
     Dates: start: 20030416, end: 20030421
  6. NAVOBAN [Concomitant]
     Indication: ILL-DEFINED DISORDER
     Dates: start: 20030416, end: 20030702

REACTIONS (7)
  - ANOREXIA [None]
  - BILE DUCT STONE [None]
  - CHOLANGITIS SCLEROSING [None]
  - CHOLELITHIASIS [None]
  - CHOLESTASIS [None]
  - OEDEMA [None]
  - PRURITUS GENERALISED [None]
